FAERS Safety Report 24646990 (Version 1)
Quarter: 2024Q4

REPORT INFORMATION
  Report Type: Other
  Country: IN (occurrence: FR)
  Receive Date: 20241121
  Receipt Date: 20241121
  Transmission Date: 20250115
  Serious: Yes (Other)
  Sender: BRECKENRIDGE PHARMACEUTICAL, INC.
  Company Number: FR-Breckenridge Pharmaceutical, Inc.-2165556

PATIENT
  Age: 65 Year
  Sex: Male

DRUGS (1)
  1. ACETAZOLAMIDE [Suspect]
     Active Substance: ACETAZOLAMIDE
     Indication: Posterior capsule opacification

REACTIONS (2)
  - Choroidal effusion [Recovered/Resolved]
  - Choroidal detachment [Recovered/Resolved]
